FAERS Safety Report 10460328 (Version 1)
Quarter: 2014Q3

REPORT INFORMATION
  Report Type: Spontaneous
  Country: US (occurrence: US)
  Receive Date: 20140917
  Receipt Date: 20140917
  Transmission Date: 20150326
  Serious: Yes (Disabling, Other)
  Sender: FDA-Public Use
  Company Number: US-GILEAD-2014-0115327

PATIENT
  Age: 33 Year
  Sex: Male
  Weight: 86.62 kg

DRUGS (5)
  1. TRUVADA [Suspect]
     Active Substance: EMTRICITABINE\TENOFOVIR DISOPROXIL FUMARATE
     Indication: HIV INFECTION
     Dosage: 1 DF, QD
     Route: 048
     Dates: end: 20140730
  2. METHAMPHETAMINE [Suspect]
     Active Substance: METHAMPHETAMINE
     Indication: PRODUCT USED FOR UNKNOWN INDICATION
     Route: 065
  3. TIVICAY [Suspect]
     Active Substance: DOLUTEGRAVIR SODIUM
     Indication: HIV INFECTION
     Dosage: 50 MG, QD
     Route: 048
     Dates: start: 201406, end: 20140730
  4. BACTRIM [Suspect]
     Active Substance: SULFAMETHOXAZOLE\TRIMETHOPRIM
     Indication: PRODUCT USED FOR UNKNOWN INDICATION
     Dosage: UNK
     Route: 065
     Dates: end: 20140730
  5. OXYCODONE [Concomitant]
     Active Substance: OXYCODONE
     Indication: PRODUCT USED FOR UNKNOWN INDICATION

REACTIONS (24)
  - Drug hypersensitivity [Recovering/Resolving]
  - Lymphadenopathy [Recovering/Resolving]
  - Pruritus [Recovering/Resolving]
  - Liver injury [Recovering/Resolving]
  - Ocular icterus [Recovering/Resolving]
  - Hepatitis C [Recovering/Resolving]
  - Hepatitis acute [Recovering/Resolving]
  - Liver function test abnormal [Recovering/Resolving]
  - Blood bilirubin increased [Recovering/Resolving]
  - Rash [Recovered/Resolved]
  - Pancreatitis [Recovering/Resolving]
  - Immune reconstitution inflammatory syndrome [Recovering/Resolving]
  - Splenomegaly [Recovering/Resolving]
  - Hepatomegaly [Recovering/Resolving]
  - Diarrhoea [Recovered/Resolved]
  - Transaminases increased [Recovering/Resolving]
  - Chromaturia [Recovering/Resolving]
  - Faeces pale [Recovering/Resolving]
  - Pancreatic mass [Recovering/Resolving]
  - Jaundice [Recovering/Resolving]
  - Lymphoma [Recovering/Resolving]
  - Nausea [Recovered/Resolved]
  - Vomiting [Recovered/Resolved]
  - Abdominal pain upper [Recovered/Resolved]

NARRATIVE: CASE EVENT DATE: 2014
